FAERS Safety Report 4916937-0 (Version None)
Quarter: 2006Q1

REPORT INFORMATION
  Report Type: 
  Country: None (occurrence: None)
  Receive Date: 20060214
  Receipt Date: 20060201
  Transmission Date: 20060701
  Serious: Yes (Death, Life-Threatening, Hospitalization)
  Sender: FDA-Public Use
  Company Number: 2005170597

PATIENT
  Age: 84 Year
  Sex: Female
  Weight: 40 kg

DRUGS (13)
  1. ZITHROMAX [Suspect]
     Indication: NASOPHARYNGITIS
     Dosage: 250 MG (250 MG, 1 IN 1 D), ORAL
     Route: 048
     Dates: start: 20051209, end: 20051210
  2. WARFARIN SODIUM [Concomitant]
  3. AMLODIPINE [Concomitant]
  4. LASIX [Concomitant]
  5. ISOSORBIDE MONONITRATE [Concomitant]
  6. TANATRIL ^ALGOL^ (IMIDAPRIL HYDROCHLORIDE) [Concomitant]
  7. LEVOTHYROXINE SODIUM [Concomitant]
  8. CLEANAL (FUDOSTEINE) [Concomitant]
  9. MEDICON (DEXTROMETHORPHAN HYDROBROMIDE) [Concomitant]
  10. HOKUNALIN (TULOBUTEROL HYDROCHLORIDE) [Concomitant]
  11. KALGUT (DENOPAMINE) [Concomitant]
  12. ZANTAC [Concomitant]
  13. GASMOTIN (MOSAPRIDE CITRATE) [Concomitant]

REACTIONS (13)
  - ALANINE AMINOTRANSFERASE INCREASED [None]
  - AMMONIA INCREASED [None]
  - ASPARTATE AMINOTRANSFERASE INCREASED [None]
  - CONDITION AGGRAVATED [None]
  - DEPRESSED LEVEL OF CONSCIOUSNESS [None]
  - DIALYSIS [None]
  - HAEMORRHAGE [None]
  - HEPATITIS ACUTE [None]
  - INTERNATIONAL NORMALISED RATIO INCREASED [None]
  - LIVER DISORDER [None]
  - PROCEDURAL COMPLICATION [None]
  - PROTHROMBIN TIME PROLONGED [None]
  - RENAL FAILURE CHRONIC [None]
